FAERS Safety Report 11605258 (Version 1)
Quarter: 2015Q3

REPORT INFORMATION
  Report Type: Spontaneous
  Country: US (occurrence: US)
  Receive Date: 20150916
  Receipt Date: 20150916
  Transmission Date: 20151125
  Serious: No
  Sender: FDA-Public Use
  Company Number: US-ELI_LILLY_AND_COMPANY-US201403010817

PATIENT
  Sex: Male

DRUGS (2)
  1. NOVOLOG [Concomitant]
     Active Substance: INSULIN ASPART
     Dosage: 40 U, BID
     Route: 065
  2. HUMALOG [Suspect]
     Active Substance: INSULIN LISPRO
     Indication: DIABETES MELLITUS
     Dosage: UNK UNK, PRN
     Route: 065
     Dates: start: 201310

REACTIONS (7)
  - Glycosylated haemoglobin increased [Unknown]
  - Disturbance in attention [Unknown]
  - Blood glucose increased [Unknown]
  - Muscular weakness [Unknown]
  - Hyperhidrosis [Unknown]
  - Drug ineffective [Unknown]
  - Blood glucose decreased [Unknown]
